FAERS Safety Report 6609271-4 (Version None)
Quarter: 2010Q1

REPORT INFORMATION
  Report Type: 
  Country: None (occurrence: None)
  Receive Date: 20100224
  Receipt Date: 20100217
  Transmission Date: 20100710
  Serious: Yes (Life-Threatening, Hospitalization, Other)
  Sender: FDA-Public Use
  Company Number: WAES 1002USA02464

PATIENT
  Age: 64 Year
  Sex: Male

DRUGS (13)
  1. ISENTRESS [Suspect]
     Indication: HIV INFECTION
     Dosage: 400 MG/BID/PO
     Route: 048
     Dates: start: 20090804
  2. ADVAIR DISKUS 100/50 [Concomitant]
  3. ANDROGEL [Concomitant]
  4. EPZICOM [Concomitant]
  5. NORVIR [Concomitant]
  6. REYATAZ [Concomitant]
  7. SUSTIVA [Concomitant]
  8. ACYCLOVIR [Concomitant]
  9. ASPIRIN [Concomitant]
  10. CHONDROITIN SULFATE [Concomitant]
  11. FLAXSEED [Concomitant]
  12. OMEGA-3 MARINE TRIGLYCERIDES [Concomitant]
  13. TEMAZEPAM [Concomitant]

REACTIONS (3)
  - CARDIAC FAILURE CONGESTIVE [None]
  - CARDIOMYOPATHY ALCOHOLIC [None]
  - VIRAL INFECTION [None]
